FAERS Safety Report 8090296-X (Version None)
Quarter: 2012Q1

REPORT INFORMATION
  Report Type: 
  Country: None (occurrence: None)
  Receive Date: 20120129
  Receipt Date: 20111111
  Transmission Date: 20120608
  Serious: No
  Sender: FDA-Public Use
  Company Number: US-ABBOTT-11P-163-0873608-00

PATIENT
  Sex: Female
  Weight: 85.352 kg

DRUGS (7)
  1. VITAMIN B COMPLEX CAP [Concomitant]
     Indication: VITAMIN B COMPLEX DEFICIENCY
  2. HUMIRA [Suspect]
     Indication: PSORIATIC ARTHROPATHY
     Dates: start: 20110101
  3. OMEPRAZOLE [Concomitant]
     Indication: DYSPEPSIA
  4. FLEXERIL [Concomitant]
     Indication: MYALGIA
  5. CELEBREX [Concomitant]
     Indication: PSORIATIC ARTHROPATHY
  6. XANAX [Concomitant]
     Indication: PANIC ATTACK
  7. AMBIEN [Concomitant]
     Indication: INSOMNIA
     Dosage: AS NEEDED AT BEDTIME

REACTIONS (1)
  - LIP PAIN [None]
